FAERS Safety Report 16479126 (Version 1)
Quarter: 2019Q2

REPORT INFORMATION
  Report Type: Spontaneous
  Country: US (occurrence: US)
  Receive Date: 20190626
  Receipt Date: 20190626
  Transmission Date: 20190711
  Serious: Yes (Other)
  Sender: FDA-Public Use
  Company Number: US-SAOL THERAPEUTICS-2018SAO01085

PATIENT
  Age: 17 Year
  Sex: Male

DRUGS (7)
  1. GUANFACINE. [Concomitant]
     Active Substance: GUANFACINE
     Dosage: 1 MG, 1X/DAY IN THE MORNING
  2. CLONAZEPAM. [Concomitant]
     Active Substance: CLONAZEPAM
     Dosage: 1 MG, 1X/DAY AT BEDTIME
  3. POLYETHYLENE GLYCOL [Concomitant]
     Active Substance: POLYETHYLENE GLYCOLS
  4. LIORESAL [Suspect]
     Active Substance: BACLOFEN
     Indication: QUADRIPLEGIA
     Dosage: UNK
     Route: 037
     Dates: start: 20171220
  5. ALLOPURINOL. [Concomitant]
     Active Substance: ALLOPURINOL
  6. LIORESAL [Suspect]
     Active Substance: BACLOFEN
     Indication: MUSCLE SPASTICITY
  7. LIORESAL [Suspect]
     Active Substance: BACLOFEN
     Indication: DYSTONIA

REACTIONS (1)
  - Urinary retention [Recovered/Resolved]

NARRATIVE: CASE EVENT DATE: 20181030
